FAERS Safety Report 6974915-4 (Version None)
Quarter: 2010Q3

REPORT INFORMATION
  Report Type: 
  Country: None (occurrence: None)
  Receive Date: 20100909
  Receipt Date: 20090109
  Transmission Date: 20110219
  Serious: No
  Sender: FDA-Public Use
  Company Number: US-WYE-H07661209

PATIENT
  Age: 56 Year
  Sex: Female
  Weight: 68.1 kg

DRUGS (10)
  1. PRISTIQ [Suspect]
     Indication: MAJOR DEPRESSION
     Route: 048
     Dates: start: 20081001, end: 20090107
  2. SINGULAIR [Concomitant]
  3. HYDROCHLOROTHIAZIDE [Concomitant]
  4. NITROGLYCERIN [Concomitant]
  5. ACCUPRIL [Concomitant]
  6. CLONAZEPAM [Concomitant]
  7. AMBIEN [Concomitant]
  8. ACETYLSALICYLIC ACID [Concomitant]
  9. PRILOSEC [Concomitant]
  10. PROVENTIL [Concomitant]

REACTIONS (3)
  - GLOSSITIS [None]
  - GLOSSODYNIA [None]
  - ORAL INFECTION [None]
